FAERS Safety Report 23265719 (Version 1)
Quarter: 2023Q4

REPORT INFORMATION
  Report Type: Report from Study
  Country: DE (occurrence: DE)
  Receive Date: 20231206
  Receipt Date: 20231206
  Transmission Date: 20240110
  Serious: Yes (Other)
  Sender: FDA-Public Use
  Company Number: DE-ABBVIE-5522223

PATIENT
  Sex: Female

DRUGS (3)
  1. HUMIRA [Suspect]
     Active Substance: ADALIMUMAB
     Indication: Ankylosing spondylitis
     Dosage: FORM STRENGTH: 40 MILLIGRAM
     Route: 058
     Dates: start: 20080901
  2. HUMIRA [Suspect]
     Active Substance: ADALIMUMAB
     Dosage: APPROXIMATELY EVERY 10 WEEKS
     Route: 058
     Dates: start: 202306
  3. HUMIRA [Suspect]
     Active Substance: ADALIMUMAB
     Dosage: APPROXIMATELY EVERY 10 WEEKS
     Route: 058
     Dates: start: 20231120

REACTIONS (4)
  - Abortion spontaneous [Unknown]
  - Foetal chromosome abnormality [Not Recovered/Not Resolved]
  - Maternal exposure during pregnancy [Unknown]
  - Rheumatic disorder [Not Recovered/Not Resolved]

NARRATIVE: CASE EVENT DATE: 20230101
